FAERS Safety Report 17706939 (Version 1)
Quarter: 2020Q2

REPORT INFORMATION
  Report Type: Report from Study
  Country: None (occurrence: FR)
  Receive Date: 20200424
  Receipt Date: 20200424
  Transmission Date: 20200714
  Serious: Yes (Hospitalization)
  Sender: FDA-Public Use
  Company Number: FR-ABBVIE-20P-056-3232315-00

PATIENT
  Age: 84 Year
  Sex: Female

DRUGS (4)
  1. VENETOCLAX. [Suspect]
     Active Substance: VENETOCLAX
     Indication: LYMPHOMA
     Dosage: FROM DAY 8 CYCLE 1,  LAST DOSE 600MG 3 JAN 2020 (800 MG, 1/1 DAY)
     Route: 048
     Dates: start: 20191001
  2. ATEZOLIZUMAB. [Concomitant]
     Active Substance: ATEZOLIZUMAB
     Indication: B-CELL LYMPHOMA
     Dosage: DAY 2 OF EACH 21D CYCLE.  LAST DOSE 1200MG ON 18 DEC 2019
     Route: 041
     Dates: start: 20190925
  3. OBINUTUZUMAB. [Concomitant]
     Active Substance: OBINUTUZUMAB
     Indication: B-CELL LYMPHOMA
     Dosage: DAY 1,8,15 OF C1 AND DAY 1 C2-C8, LAST DOSE 1000MG 17 DEC 2019
     Route: 042
     Dates: start: 20190924
  4. AMOXICILLINE [Concomitant]
     Active Substance: AMOXICILLIN
     Indication: TRACHEITIS
     Dates: start: 20191221, end: 20191226

REACTIONS (2)
  - Pneumonitis [Recovered/Resolved]
  - Hypoxia [Recovered/Resolved]

NARRATIVE: CASE EVENT DATE: 20200104
